FAERS Safety Report 19103223 (Version 1)
Quarter: 2021Q2

REPORT INFORMATION
  Report Type: Spontaneous
  Country: US (occurrence: US)
  Receive Date: 20210407
  Receipt Date: 20210407
  Transmission Date: 20210717
  Serious: Yes (Other)
  Sender: FDA-Public Use
  Company Number: US-HIKMA PHARMACEUTICALS USA INC.-US-H14001-21-01666

PATIENT
  Age: 47 Year
  Sex: Male

DRUGS (12)
  1. NIACIN. [Suspect]
     Active Substance: NIACIN
     Indication: IMMUNISATION
     Dosage: UNKNOWN
     Route: 065
  2. VITAMIN C [Suspect]
     Active Substance: ASCORBIC ACID
     Indication: IMMUNISATION
     Dosage: UNKNOWN
     Route: 065
  3. VITAMIN E [Suspect]
     Active Substance: .ALPHA.-TOCOPHEROL
     Indication: IMMUNISATION
     Dosage: UNKNOWN
     Route: 065
  4. VITAMIN B COMPLEX [Suspect]
     Active Substance: CYANOCOBALAMIN\DEXPANTHENOL\NIACINAMIDE\PYRIDOXINE HYDROCHLORIDE\RIBOFLAVIN 5^-PHOSPHATE SODIUM\THIAMINE HYDROCHLORIDE\VITAMIN B COMPLEX
     Indication: IMMUNISATION
     Dosage: UNKNOWN
     Route: 065
  5. CALCIUM [Suspect]
     Active Substance: CALCIUM
     Indication: IMMUNISATION
     Dosage: UNKNOWN
     Route: 065
  6. VITAMIN D3 [Suspect]
     Active Substance: CHOLECALCIFEROL
     Indication: IMMUNISATION
     Dosage: UNKNOWN
     Route: 065
  7. VITAMIN A [Suspect]
     Active Substance: VITAMIN A
     Indication: IMMUNISATION
     Dosage: UNKNOWN
     Route: 065
  8. GINKGO BILOBA [Suspect]
     Active Substance: GINKGO
     Indication: IMMUNISATION
     Dosage: UNKNOWN
     Route: 065
  9. CYANOCOBALAMIN. [Suspect]
     Active Substance: CYANOCOBALAMIN
     Indication: IMMUNISATION
     Dosage: UNKNOWN
     Route: 065
  10. ZINC. [Suspect]
     Active Substance: ZINC
     Indication: IMMUNISATION
     Dosage: UNKNOWN
     Route: 065
  11. VITAMIN B6 [Suspect]
     Active Substance: PYRIDOXINE HYDROCHLORIDE
     Indication: IMMUNISATION
     Dosage: UNKNOWN
     Route: 065
  12. MAGNESIUM [Suspect]
     Active Substance: MAGNESIUM
     Indication: IMMUNISATION
     Dosage: UNKNOWN
     Route: 065

REACTIONS (8)
  - Dyspnoea [Unknown]
  - Hepatomegaly [Unknown]
  - Non-cirrhotic portal hypertension [Unknown]
  - Ascites [Not Recovered/Not Resolved]
  - Oedema peripheral [Unknown]
  - Orthopnoea [Unknown]
  - Tachycardia [Unknown]
  - Pleural effusion [Unknown]
